FAERS Safety Report 9135595 (Version 1)
Quarter: 2013Q1

REPORT INFORMATION
  Report Type: Spontaneous
  Country: US (occurrence: US)
  Receive Date: 20130304
  Receipt Date: 20130304
  Transmission Date: 20140127
  Serious: No
  Sender: FDA-Public Use
  Company Number: US-ENDO PHARMACEUTICALS INC.-PERC20110044

PATIENT
  Age: 54 Year
  Sex: Female
  Weight: 78.09 kg

DRUGS (12)
  1. PERCOCET [Suspect]
     Indication: ARTHRALGIA
     Dosage: 10/325 MG
     Route: 048
     Dates: start: 1995
  2. FENTANYL [Suspect]
     Indication: ARTHRALGIA
     Route: 061
     Dates: start: 20110401
  3. CARISOPRODOL [Suspect]
     Indication: HYPOTONIA
     Route: 048
     Dates: start: 2010
  4. ZOLOFT [Suspect]
     Indication: DEPRESSION
     Dosage: 250 MG
     Route: 048
     Dates: start: 1995
  5. NEXIUM [Suspect]
     Indication: ABDOMINAL DISCOMFORT
     Route: 048
     Dates: start: 2010
  6. NAPROXEN [Suspect]
     Indication: ARTHRALGIA
     Dosage: UNK
     Dates: start: 2009
  7. DIAZEPAM [Suspect]
     Indication: ANXIETY
     Route: 048
     Dates: start: 2010
  8. PROCATEROL HYDROCHLORIDE [Suspect]
     Indication: ASTHMA
     Dosage: 2 PUFF FOUR TIMES A DAY
     Route: 055
  9. CALCIUM [Suspect]
     Indication: MINERAL SUPPLEMENTATION
     Route: 048
  10. ONE A DAY WOMEN^S 50 [Suspect]
     Indication: VITAMIN SUPPLEMENTATION
     Dosage: UNK
     Route: 048
     Dates: start: 1995
  11. ALBUTEROL SULFATE [Suspect]
     Indication: ASTHMA
     Dosage: UNKNOWN
     Route: 055
     Dates: end: 20110416
  12. IPRATROPIUM BROMIDE [Suspect]
     Indication: ASTHMA
     Dosage: UNKNOWN
     Route: 055
     Dates: end: 20110416

REACTIONS (4)
  - Pharyngitis streptococcal [Not Recovered/Not Resolved]
  - Pyrexia [Recovered/Resolved]
  - Hyperhidrosis [Not Recovered/Not Resolved]
  - Abdominal discomfort [Not Recovered/Not Resolved]
